FAERS Safety Report 26140097 (Version 1)
Quarter: 2025Q4

REPORT INFORMATION
  Report Type: Spontaneous
  Country: EU (occurrence: EU)
  Receive Date: 20251210
  Receipt Date: 20251210
  Transmission Date: 20260117
  Serious: Yes (Hospitalization)
  Sender: NOVARTIS
  Company Number: None

PATIENT
  Age: 65 Year
  Sex: Male
  Weight: 52 kg

DRUGS (3)
  1. MYFORTIC [Interacting]
     Active Substance: MYCOPHENOLATE SODIUM
     Indication: Solid organ transplant
     Dosage: 540 MG, Q12H
     Route: 048
     Dates: start: 202506, end: 20250706
  2. PROGRAF [Interacting]
     Active Substance: TACROLIMUS
     Indication: Solid organ transplant
     Dosage: 5.5 MG, Q12H
     Route: 048
     Dates: start: 202506
  3. PREDNISONE [Interacting]
     Active Substance: PREDNISONE
     Indication: Solid organ transplant
     Dosage: 5 MG, Q24H (PREDNISONA CINFA 5 MG COMPRIMIDOS EFG, 30 COMPRIMIDOS)
     Route: 048
     Dates: start: 202506

REACTIONS (2)
  - Bacteraemia [Recovered/Resolved]
  - Bacterial prostatitis [Recovered/Resolved]

NARRATIVE: CASE EVENT DATE: 20250704
